FAERS Safety Report 10029765 (Version 1)
Quarter: 2014Q1

REPORT INFORMATION
  Report Type: Spontaneous
  Country: US (occurrence: None)
  Receive Date: 20140321
  Receipt Date: 20140321
  Transmission Date: 20141002
  Serious: Yes (Other)
  Sender: FDA-Public Use
  Company Number: None

PATIENT
  Age: 55 Year
  Sex: Male

DRUGS (1)
  1. NEXAVAR 200 MG BAYER [Suspect]
     Indication: RENAL CANCER
     Route: 048
     Dates: start: 20140225

REACTIONS (2)
  - Dry skin [None]
  - Activities of daily living impaired [None]
